FAERS Safety Report 9868176 (Version 2)
Quarter: 2014Q1

REPORT INFORMATION
  Report Type: Report from Study
  Country: CA (occurrence: CA)
  Receive Date: 20140204
  Receipt Date: 20140204
  Transmission Date: 20141002
  Serious: Yes (Death, Other)
  Sender: FDA-Public Use
  Company Number: PHHY2013CA058881

PATIENT
  Age: 86 Year
  Sex: Male

DRUGS (1)
  1. SANDOSTATIN LAR [Suspect]
     Indication: NEUROENDOCRINE TUMOUR
     Dosage: 30 MG, EVERY 4 WEEKS
     Route: 030
     Dates: start: 20130417, end: 20140123

REACTIONS (9)
  - Death [Fatal]
  - Angina pectoris [Unknown]
  - Chest discomfort [Unknown]
  - Hypersomnia [Unknown]
  - Blood pressure increased [Unknown]
  - Breast tenderness [Unknown]
  - Gynaecomastia [Unknown]
  - Hyperaesthesia [Unknown]
  - Joint swelling [Unknown]
